FAERS Safety Report 15018591 (Version 1)
Quarter: 2018Q2

REPORT INFORMATION
  Report Type: Report from Study
  Country: CA (occurrence: CA)
  Receive Date: 20180615
  Receipt Date: 20180615
  Transmission Date: 20180711
  Serious: Yes (Other)
  Sender: FDA-Public Use
  Company Number: CA-HLSUS-2018-CA-000927

PATIENT
  Age: 37 Year
  Sex: Male

DRUGS (5)
  1. CLOZARIL [Suspect]
     Active Substance: CLOZAPINE
     Indication: SCHIZOPHRENIA
     Dosage: 550MG DAILY
     Route: 048
     Dates: start: 20171102
  2. NADOLOL. [Concomitant]
     Active Substance: NADOLOL
     Dosage: 30 MG DAILY
     Route: 048
  3. ATORVASTATIN [Concomitant]
     Active Substance: ATORVASTATIN
     Dosage: 10 MG DAILY
  4. ATROPINE. [Concomitant]
     Active Substance: ATROPINE
  5. PALIPERIDONE PALMITATE [Concomitant]
     Active Substance: PALIPERIDONE PALMITATE
     Dosage: 200MG EVERY 4 WEEKS

REACTIONS (4)
  - Sedation [Unknown]
  - Intentional self-injury [Unknown]
  - Hallucination, auditory [Unknown]
  - Chest pain [Unknown]

NARRATIVE: CASE EVENT DATE: 20180606
